FAERS Safety Report 4267687-8 (Version None)
Quarter: 2004Q1

REPORT INFORMATION
  Report Type: 
  Country: None (occurrence: None)
  Receive Date: 20040109
  Receipt Date: 20031031
  Transmission Date: 20041129
  Serious: Yes (Life-Threatening, Hospitalization)
  Sender: FDA-Public Use
  Company Number: PHBS2003BE12274

PATIENT
  Sex: Female

DRUGS (1)
  1. LAMISIL [Suspect]
     Dosage: 250 MG/DAY
     Route: 048
     Dates: start: 20030101, end: 20030101

REACTIONS (3)
  - CONFUSIONAL STATE [None]
  - EPILEPSY [None]
  - MOVEMENT DISORDER [None]
